FAERS Safety Report 5748602-4 (Version None)
Quarter: 2008Q2

REPORT INFORMATION
  Report Type: 
  Country: None (occurrence: None)
  Receive Date: 20080521
  Receipt Date: 20080506
  Transmission Date: 20081010
  Serious: Yes (Disabling)
  Sender: FDA-Public Use
  Company Number: 2008AL003530

PATIENT
  Age: 87 Year
  Sex: Female

DRUGS (5)
  1. DIGOXIN [Suspect]
     Indication: ATRIAL FIBRILLATION
     Dosage: 0.25 MG DAILY PO
     Route: 048
  2. LEVOTHYROXINE SODIUM [Concomitant]
  3. DIGOXIN [Concomitant]
  4. FUROSEMIDE [Concomitant]
  5. POTASSIUM CHLORIDE [Concomitant]

REACTIONS (1)
  - DEAFNESS BILATERAL [None]
